FAERS Safety Report 21250048 (Version 1)
Quarter: 2022Q3

REPORT INFORMATION
  Report Type: Spontaneous
  Country: US (occurrence: US)
  Receive Date: 20220824
  Receipt Date: 20220824
  Transmission Date: 20221026
  Serious: No
  Sender: FDA-Public Use
  Company Number: US-Millicent Holdings Ltd.-MILL20220294

PATIENT
  Age: 57 Year

DRUGS (2)
  1. INTRAROSA [Suspect]
     Active Substance: PRASTERONE
     Indication: Dyspareunia
     Dosage: 6.5 MG
     Route: 067
     Dates: start: 2022
  2. INTRAROSA [Suspect]
     Active Substance: PRASTERONE
     Dosage: 6.5 MG
     Route: 067
     Dates: start: 2022

REACTIONS (5)
  - Application site discharge [Unknown]
  - Intentional underdose [Not Recovered/Not Resolved]
  - Inability to afford medication [Not Recovered/Not Resolved]
  - Product colour issue [Not Recovered/Not Resolved]
  - Product physical issue [Not Recovered/Not Resolved]

NARRATIVE: CASE EVENT DATE: 20220101
